FAERS Safety Report 5720584-0 (Version None)
Quarter: 2008Q2

REPORT INFORMATION
  Report Type: 
  Country: None (occurrence: None)
  Receive Date: 20080428
  Receipt Date: 20080428
  Transmission Date: 20081010
  Serious: No
  Sender: FDA-Public Use
  Company Number: None

PATIENT
  Age: 28 Year
  Sex: Female
  Weight: 52.1637 kg

DRUGS (1)
  1. FLUCTICASONE PROPIONATE  50MCG  PENN LABS [Suspect]
     Indication: MULTIPLE ALLERGIES
     Dosage: 1-2 SPRAYS/NOSTRIL 1XDAY NASAL
     Route: 045
     Dates: start: 20080422, end: 20080424

REACTIONS (5)
  - INFLUENZA LIKE ILLNESS [None]
  - MALAISE [None]
  - PHARYNGOLARYNGEAL PAIN [None]
  - PRODUCTIVE COUGH [None]
  - RESPIRATORY TRACT CONGESTION [None]
